FAERS Safety Report 18148509 (Version 2)
Quarter: 2025Q4

REPORT INFORMATION
  Report Type: Spontaneous
  Country: EU (occurrence: EU)
  Receive Date: 20200814
  Receipt Date: 20251112
  Transmission Date: 20260117
  Serious: Yes (Other)
  Sender: AUROBINDO
  Company Number: EU-LUNDBECK-DKLU3019154

PATIENT
  Age: 57 Year
  Sex: Female

DRUGS (3)
  1. OLANZAPINE [Suspect]
     Active Substance: OLANZAPINE
     Indication: Schizoaffective disorder
     Dosage: 20 MILLIGRAM, BY NIGHT (NOCTE)
     Route: 065
  2. FLUPENTIXOL DECANOATE [Suspect]
     Active Substance: FLUPENTIXOL DECANOATE
     Indication: Schizoaffective disorder
     Dosage: 40 MILLIGRAM, EVERY 2 WEEKS
     Route: 030
     Dates: end: 201409
  3. CLOZAPINE [Concomitant]
     Active Substance: CLOZAPINE
     Indication: Schizoaffective disorder
     Dosage: UNK, INCREASED OVER THE COURSE OF 6 WEEKS TO 350 MG/DAY
     Route: 065
     Dates: start: 201409

REACTIONS (10)
  - Apathy [Recovered/Resolved]
  - Poverty of speech [Recovered/Resolved]
  - Parkinsonism [Unknown]
  - Persecutory delusion [Recovered/Resolved]
  - Depressed mood [Recovered/Resolved]
  - Dystonia [Unknown]
  - Anxiety [Unknown]
  - Agitation [Unknown]
  - Social avoidant behaviour [Recovered/Resolved]
  - Product use in unapproved indication [Unknown]
